FAERS Safety Report 9771204 (Version 2)
Quarter: 2013Q4

REPORT INFORMATION
  Report Type: Spontaneous
  Country: US (occurrence: US)
  Receive Date: 20131218
  Receipt Date: 20131218
  Transmission Date: 20140711
  Serious: No
  Sender: FDA-Public Use
  Company Number: US-PFIZER INC-2013349162

PATIENT
  Sex: 0

DRUGS (1)
  1. VANTIN [Suspect]
     Indication: SINUSITIS
     Dosage: UNK

REACTIONS (4)
  - Bacterial infection [Unknown]
  - Malaise [Unknown]
  - Liver disorder [Unknown]
  - Renal disorder [Unknown]
